FAERS Safety Report 21824710 (Version 2)
Quarter: 2023Q1

REPORT INFORMATION
  Report Type: Spontaneous
  Country: US (occurrence: US)
  Receive Date: 20230105
  Receipt Date: 20230126
  Transmission Date: 20230417
  Serious: No
  Sender: FDA-Public Use
  Company Number: US-ALLERGAN-2241150US

PATIENT
  Age: 78 Year
  Sex: Male

DRUGS (2)
  1. DURYSTA [Suspect]
     Active Substance: BIMATOPROST
     Indication: Intraocular pressure increased
  2. DURYSTA [Suspect]
     Active Substance: BIMATOPROST
     Indication: Glaucoma

REACTIONS (1)
  - Needle issue [Unknown]
